FAERS Safety Report 18437380 (Version 1)
Quarter: 2020Q4

REPORT INFORMATION
  Report Type: Spontaneous
  Country: CZ (occurrence: CZ)
  Receive Date: 20201028
  Receipt Date: 20201028
  Transmission Date: 20210114
  Serious: Yes (Death, Other)
  Sender: FDA-Public Use
  Company Number: CZ-PFIZER INC-2020414424

PATIENT
  Age: 51 Year
  Sex: Male

DRUGS (1)
  1. INOTUZUMAB OZOGAMICIN [Suspect]
     Active Substance: INOTUZUMAB OZOGAMICIN
     Indication: ACUTE LYMPHOCYTIC LEUKAEMIA
     Dosage: UNK UNK, CYCLIC (2 CYCLES)
     Dates: start: 202006, end: 202007

REACTIONS (9)
  - Atrial fibrillation [Unknown]
  - Gastrointestinal inflammation [Unknown]
  - Death [Fatal]
  - Aspiration [Unknown]
  - Haematotoxicity [Unknown]
  - Anuria [Unknown]
  - Pulmonary mycosis [Unknown]
  - Ileus [Unknown]
  - Venoocclusive liver disease [Unknown]

NARRATIVE: CASE EVENT DATE: 2020
